FAERS Safety Report 4813264-7 (Version None)
Quarter: 2005Q4

REPORT INFORMATION
  Report Type: 
  Country: None (occurrence: None)
  Receive Date: 20051028
  Receipt Date: 20050419
  Transmission Date: 20060501
  Serious: No
  Sender: FDA-Public Use
  Company Number: US-GLAXOSMITHKLINE-A0554845A

PATIENT
  Age: 59 Year
  Sex: Male

DRUGS (14)
  1. ADVAIR DISKUS 100/50 [Suspect]
     Indication: ASTHMA
     Dosage: 1PUFF TWICE PER DAY
     Route: 055
     Dates: start: 20040401
  2. ALBUTEROL [Concomitant]
  3. SPIRIVA [Concomitant]
  4. DIOVAN [Concomitant]
  5. AMBIEN [Concomitant]
  6. PROCARDIA [Concomitant]
  7. LIPITOR [Concomitant]
  8. ISOSORBIDE [Concomitant]
  9. FLEXERIL [Concomitant]
     Route: 065
  10. DAYPRO [Concomitant]
  11. ASPIRIN [Concomitant]
  12. NASONEX [Concomitant]
  13. ACIPHEX [Concomitant]
  14. XANAX [Concomitant]

REACTIONS (1)
  - CANDIDIASIS [None]
